FAERS Safety Report 24659111 (Version 1)
Quarter: 2024Q4

REPORT INFORMATION
  Report Type: Spontaneous
  Country: RU (occurrence: RU)
  Receive Date: 20241125
  Receipt Date: 20241125
  Transmission Date: 20250114
  Serious: Yes (Life-Threatening)
  Sender: AMGEN
  Company Number: RU-AMGEN-RUSSP2024230217

PATIENT
  Age: 18 Year
  Sex: Male
  Weight: 50 kg

DRUGS (1)
  1. BLINCYTO [Suspect]
     Active Substance: BLINATUMOMAB
     Indication: Product used for unknown indication
     Dosage: 105 MICROGRAM INTRAVENOUS (IV) DROPS THROUGH PUMP 90 HOURS
     Route: 040
     Dates: start: 20241031, end: 20241101

REACTIONS (1)
  - Cardiac arrest [Recovered/Resolved]

NARRATIVE: CASE EVENT DATE: 20241101
